FAERS Safety Report 15985936 (Version 2)
Quarter: 2023Q4

REPORT INFORMATION
  Report Type: Spontaneous
  Country: US (occurrence: None)
  Receive Date: 20190220
  Receipt Date: 20231218
  Transmission Date: 20240110
  Serious: Yes (Life-Threatening, Hospitalization, Other)
  Sender: FDA-Public Use
  Company Number: 2019SE27599

PATIENT
  Age: 34 Year
  Sex: Male

DRUGS (5)
  1. QUETIAPINE [Suspect]
     Active Substance: QUETIAPINE
     Indication: Bipolar disorder
     Route: 048
  2. QUETIAPINE [Suspect]
     Active Substance: QUETIAPINE
     Indication: Schizophrenia
     Route: 048
  3. DIVALPROEX SODIUM [Concomitant]
     Active Substance: DIVALPROEX SODIUM
  4. BENZTROPINE [Concomitant]
     Active Substance: BENZTROPINE
  5. HALOPERIDOL [Concomitant]
     Active Substance: HALOPERIDOL

REACTIONS (4)
  - Diabetic ketoacidosis [Unknown]
  - Pancreatitis acute [Unknown]
  - Hypertriglyceridaemia [Recovered/Resolved]
  - Hyperglycaemia [Recovered/Resolved]
